FAERS Safety Report 6807414-0 (Version None)
Quarter: 2010Q2

REPORT INFORMATION
  Report Type: 
  Country: None (occurrence: None)
  Receive Date: 20100629
  Receipt Date: 20090414
  Transmission Date: 20101027
  Serious: Yes (Other)
  Sender: FDA-Public Use
  Company Number: US-PFIZER INC-2008079031

PATIENT
  Sex: Male
  Weight: 64.671 kg

DRUGS (5)
  1. ZYVOX [Suspect]
     Indication: ENTEROCOCCAL INFECTION
     Dosage: 600 MG, 2X/DAY
     Route: 048
     Dates: start: 20080424, end: 20080918
  2. CUBICIN [Concomitant]
     Dosage: 50 MG, 1X/DAY
     Route: 042
     Dates: start: 20080401, end: 20080424
  3. WELLBUTRIN XL [Concomitant]
     Indication: NAUSEA
     Dosage: 150 MG, 1X/DAY
     Dates: start: 20080513, end: 20080626
  4. WELLBUTRIN [Concomitant]
     Indication: NAUSEA
  5. BUSPAR [Concomitant]
     Dosage: 5 MG, 1X/DAY
     Route: 048

REACTIONS (4)
  - CONDITION AGGRAVATED [None]
  - NEUROPATHY PERIPHERAL [None]
  - OPTIC NEUROPATHY [None]
  - VISION BLURRED [None]
